FAERS Safety Report 9125038 (Version 3)
Quarter: 2013Q4

REPORT INFORMATION
  Report Type: Spontaneous
  Country: GB (occurrence: GB)
  Receive Date: 20130227
  Receipt Date: 20131008
  Transmission Date: 20140711
  Serious: Yes (Other)
  Sender: FDA-Public Use
  Company Number: PHHY2013GB017733

PATIENT
  Age: 26 Year
  Sex: Female

DRUGS (8)
  1. QUETIAPINE [Suspect]
     Indication: PSYCHOTIC DISORDER
     Dosage: 100 MG
     Route: 048
  2. QUETIAPINE [Suspect]
     Indication: PSYCHOTIC DISORDER
     Dosage: 200 MG, BID
     Route: 048
     Dates: start: 200802, end: 200806
  3. QUETIAPINE [Suspect]
     Indication: BIPOLAR DISORDER
     Dosage: 600 MG
     Route: 048
     Dates: start: 200806, end: 200809
  4. QUETIAPINE [Suspect]
     Dosage: 400 MG, (100+300 MG)
     Route: 048
     Dates: start: 200809, end: 200810
  5. QUETIAPINE [Suspect]
     Dosage: 300 MG, QD
     Route: 048
     Dates: start: 200810, end: 200901
  6. QUETIAPINE [Suspect]
     Dosage: 300 MG, QD
     Route: 048
     Dates: start: 200901
  7. OLANZAPINE [Concomitant]
     Indication: BIPOLAR DISORDER
     Dosage: 20 MG
     Route: 048
     Dates: start: 200711, end: 200802
  8. DEPAKOTE [Concomitant]
     Indication: BIPOLAR DISORDER
     Route: 048
     Dates: start: 200208, end: 200705

REACTIONS (9)
  - Intracranial pressure increased [Not Recovered/Not Resolved]
  - Papilloedema [Unknown]
  - Photopsia [Not Recovered/Not Resolved]
  - Headache [Not Recovered/Not Resolved]
  - Vision blurred [Not Recovered/Not Resolved]
  - Oedema [Unknown]
  - Vitreous floaters [Not Recovered/Not Resolved]
  - Optic neuritis [Not Recovered/Not Resolved]
  - Maternal exposure during pregnancy [Unknown]
